FAERS Safety Report 4604928-9 (Version None)
Quarter: 2005Q1

REPORT INFORMATION
  Report Type: 
  Country: None (occurrence: None)
  Receive Date: 20050310
  Receipt Date: 20050310
  Transmission Date: 20050727
  Serious: Yes (Hospitalization)
  Sender: FDA-Public Use
  Company Number: None

PATIENT
  Sex: Male
  Weight: 77.1115 kg

DRUGS (2)
  1. INTERFERON [Suspect]
     Indication: RENAL CELL CARCINOMA STAGE UNSPECIFIED
     Dosage: 5MIU M,W,F SUBCUTANEOUS
     Route: 058
     Dates: start: 20050128, end: 20050225
  2. BAY 43-9006 [Suspect]
     Indication: RENAL CELL CARCINOMA STAGE UNSPECIFIED
     Dosage: 400 MG BID ORAL
     Route: 048
     Dates: start: 20050128, end: 20050225

REACTIONS (5)
  - AGGRESSION [None]
  - CONFUSIONAL STATE [None]
  - DISEASE PROGRESSION [None]
  - HYPERCALCAEMIA [None]
  - RENAL CELL CARCINOMA STAGE UNSPECIFIED [None]
